FAERS Safety Report 5179261-X (Version None)
Quarter: 2006Q4

REPORT INFORMATION
  Report Type: 
  Country: None (occurrence: None)
  Receive Date: 20061211
  Receipt Date: 20061129
  Transmission Date: 20070319
  Serious: Yes (Other)
  Sender: FDA-Public Use
  Company Number: 150409USA

PATIENT
  Age: 48 Year
  Sex: Female

DRUGS (2)
  1. CLOTRIMAZOLE [Suspect]
     Indication: OTITIS EXTERNA FUNGAL
     Dosage: AURICULAR (OTIC)
     Dates: start: 20060101, end: 20061101
  2. STEROIDS (NOS) [Concomitant]

REACTIONS (5)
  - EAR HAEMORRHAGE [None]
  - FEELING ABNORMAL [None]
  - HEADACHE [None]
  - MIGRAINE [None]
  - PHARMACEUTICAL PRODUCT COMPLAINT [None]
